FAERS Safety Report 18999618 (Version 1)
Quarter: 2021Q1

REPORT INFORMATION
  Report Type: Spontaneous
  Country: US (occurrence: US)
  Receive Date: 20210311
  Receipt Date: 20210311
  Transmission Date: 20210420
  Serious: No
  Sender: FDA-Public Use
  Company Number: US-ELI_LILLY_AND_COMPANY-US202103005713

PATIENT
  Sex: Female

DRUGS (2)
  1. HUMULIN N [Suspect]
     Active Substance: INSULIN HUMAN
     Indication: LATENT AUTOIMMUNE DIABETES IN ADULTS
     Dosage: 63 U, UNKNOWN
     Route: 058
  2. HUMULIN N [Suspect]
     Active Substance: INSULIN HUMAN
     Dosage: 63 U, UNKNOWN
     Route: 058

REACTIONS (1)
  - Maternal exposure during pregnancy [Not Recovered/Not Resolved]
